FAERS Safety Report 6983699-5 (Version None)
Quarter: 2010Q3

REPORT INFORMATION
  Report Type: 
  Country: None (occurrence: None)
  Receive Date: 20100914
  Receipt Date: 20081125
  Transmission Date: 20110219
  Serious: No
  Sender: FDA-Public Use
  Company Number: US-WYE-H07008008

PATIENT
  Age: 91 Year
  Sex: Female
  Weight: 59.02 kg

DRUGS (1)
  1. ADVIL LIQUI-GELS [Suspect]
     Indication: ARTHRALGIA
     Dosage: 2 LIQUI-GELS TWO TO THREE TIMES PER DAY
     Route: 048
     Dates: start: 20081115, end: 20081124

REACTIONS (2)
  - DRUG EFFECT DECREASED [None]
  - EXFOLIATIVE RASH [None]
